FAERS Safety Report 7264461-5 (Version None)
Quarter: 2011Q1

REPORT INFORMATION
  Report Type: 
  Country: None (occurrence: None)
  Receive Date: 20110131
  Receipt Date: 20110119
  Transmission Date: 20110831
  Serious: Yes (Other)
  Sender: FDA-Public Use
  Company Number: GB-JNJFOC-20110107282

PATIENT
  Age: 72 Year
  Sex: Female

DRUGS (6)
  1. TRAMADOL HYDROCHLORIDE [Suspect]
     Indication: HERPES ZOSTER
     Route: 065
  2. ACICLOVIR [Suspect]
     Indication: HERPES ZOSTER
     Route: 065
  3. AMLODIPINE [Concomitant]
  4. ACETAMINOPHEN [Concomitant]
     Indication: PAIN
  5. LOSARTAN POTASSIUM [Concomitant]
     Indication: HYPERTENSION
  6. LEVOTHYROXINE SODIUM [Concomitant]

REACTIONS (6)
  - HALLUCINATION, AUDITORY [None]
  - NIGHT SWEATS [None]
  - MALAISE [None]
  - HALLUCINATION, VISUAL [None]
  - ALOPECIA [None]
  - INSOMNIA [None]
